FAERS Safety Report 8490914-8 (Version None)
Quarter: 2012Q2

REPORT INFORMATION
  Report Type: 
  Country: None (occurrence: None)
  Receive Date: 20120629
  Receipt Date: 20120629
  Transmission Date: 20120825
  Serious: Yes (Hospitalization)
  Sender: FDA-Public Use
  Company Number: None

PATIENT
  Sex: Male

DRUGS (1)
  1. LEVITRA [Suspect]
     Indication: ERECTILE DYSFUNCTION
     Dosage: 10 MG AS NEEDED PO  FEW YEARS
     Route: 048

REACTIONS (4)
  - PALPITATIONS [None]
  - LOSS OF CONSCIOUSNESS [None]
  - HEAD INJURY [None]
  - INJURY [None]
